FAERS Safety Report 17829602 (Version 1)
Quarter: 2020Q2

REPORT INFORMATION
  Report Type: Spontaneous
  Country: FR (occurrence: FR)
  Receive Date: 20200527
  Receipt Date: 20200527
  Transmission Date: 20200714
  Serious: Yes (Congenital Anomaly, Other)
  Sender: FDA-Public Use
  Company Number: FR-MYLANLABS-2020M1051130

PATIENT
  Sex: Male
  Weight: 2.49 kg

DRUGS (4)
  1. HYDROCORTISONE ROUSSEL             /00028601/ [Suspect]
     Active Substance: HYDROCORTISONE
     Indication: PITUITARY TUMOUR BENIGN
     Dosage: 100 MILLIGRAM, QD
     Route: 064
     Dates: start: 20200221, end: 20200225
  2. PARLODEL [Suspect]
     Active Substance: BROMOCRIPTINE MESYLATE
     Indication: PITUITARY TUMOUR BENIGN
     Dosage: 20 MILLIGRAM, QD
     Route: 064
     Dates: start: 201909, end: 20200428
  3. ZITHROMAX [Suspect]
     Active Substance: AZITHROMYCIN DIHYDRATE
     Indication: CORONAVIRUS INFECTION
     Dosage: 250 MILLIGRAM, QD
     Route: 064
     Dates: start: 20200331, end: 20200404
  4. PLAQUENIL [Suspect]
     Active Substance: HYDROXYCHLOROQUINE SULFATE
     Indication: CORONAVIRUS INFECTION
     Dosage: 600 MILLIGRAM, QD
     Route: 064
     Dates: start: 20200331, end: 20200409

REACTIONS (2)
  - Foetal exposure during pregnancy [Recovered/Resolved]
  - Achromotrichia congenital [Not Recovered/Not Resolved]

NARRATIVE: CASE EVENT DATE: 20200428
